FAERS Safety Report 10277373 (Version 3)
Quarter: 2014Q3

REPORT INFORMATION
  Report Type: Other
  Country: JP (occurrence: JP)
  Receive Date: 20140703
  Receipt Date: 20140725
  Transmission Date: 20150326
  Serious: Yes (Hospitalization, Other)
  Sender: FDA-Public Use
  Company Number: JP-BRISTOL-MYERS SQUIBB COMPANY-21164108

PATIENT
  Age: 88 Year
  Sex: Male

DRUGS (7)
  1. TAKEPRON [Concomitant]
     Active Substance: LANSOPRAZOLE
  2. ERBITUX [Suspect]
     Active Substance: CETUXIMAB
     Indication: HYPOPHARYNGEAL CANCER
     Dosage: 400MG:11JUN13-16JUL13
     Route: 041
     Dates: start: 20130604, end: 20130716
  3. PLETAAL [Concomitant]
     Active Substance: CILOSTAZOL
  4. TAMBOCOR [Concomitant]
     Active Substance: FLECAINIDE ACETATE
  5. MICARDIS [Concomitant]
     Active Substance: TELMISARTAN
  6. MYSLEE [Concomitant]
     Active Substance: ZOLPIDEM TARTRATE
  7. LIVALO [Concomitant]
     Active Substance: PITAVASTATIN CALCIUM

REACTIONS (3)
  - Radiation skin injury [Recovered/Resolved]
  - Delirium [Recovered/Resolved]
  - Mucosal inflammation [Recovered/Resolved]

NARRATIVE: CASE EVENT DATE: 20130607
